FAERS Safety Report 26063074 (Version 1)
Quarter: 2025Q4

REPORT INFORMATION
  Report Type: Spontaneous
  Country: US (occurrence: None)
  Receive Date: 20251118
  Receipt Date: 20251118
  Transmission Date: 20260118
  Serious: Yes (Life-Threatening)
  Sender: FDA-CTU
  Company Number: None

PATIENT
  Age: 40 Year
  Sex: Female
  Weight: 90 kg

DRUGS (1)
  1. MOUNJARO [Suspect]
     Active Substance: TIRZEPATIDE
     Indication: Weight decreased
     Dates: start: 20240401, end: 20250402

REACTIONS (2)
  - Thyroid mass [None]
  - Thyroid cancer [None]

NARRATIVE: CASE EVENT DATE: 20251108
